FAERS Safety Report 23194846 (Version 1)
Quarter: 2023Q4

REPORT INFORMATION
  Report Type: Spontaneous
  Country: FR (occurrence: FR)
  Receive Date: 20231117
  Receipt Date: 20231117
  Transmission Date: 20240109
  Serious: Yes (Hospitalization, Other)
  Sender: FDA-Public Use
  Company Number: FR-AFSSAPS-PO2023001115

PATIENT
  Age: 96 Year
  Sex: Male
  Weight: 65.9 kg

DRUGS (3)
  1. SILODOSIN [Interacting]
     Active Substance: SILODOSIN
     Indication: Benign prostatic hyperplasia
     Dosage: 4 MILLIGRAM
     Route: 048
  2. ALFUZOSIN HYDROCHLORIDE [Interacting]
     Active Substance: ALFUZOSIN HYDROCHLORIDE
     Indication: Benign prostatic hyperplasia
     Dosage: 10 MILLIGRAM
     Route: 048
     Dates: end: 20231020
  3. DUTASTERIDE\TAMSULOSIN [Interacting]
     Active Substance: DUTASTERIDE\TAMSULOSIN
     Indication: Benign prostatic hyperplasia
     Dosage: 1 DOSAGE FORM
     Route: 048
     Dates: end: 20231020

REACTIONS (3)
  - Syncope [Recovered/Resolved]
  - Hemiplegia [Recovered/Resolved]
  - Dysarthria [Recovering/Resolving]

NARRATIVE: CASE EVENT DATE: 20231018
